FAERS Safety Report 23532981 (Version 2)
Quarter: 2024Q1

REPORT INFORMATION
  Report Type: Spontaneous
  Country: MY (occurrence: MY)
  Receive Date: 20240216
  Receipt Date: 20240221
  Transmission Date: 20240409
  Serious: Yes (Other)
  Sender: FDA-Public Use
  Company Number: MY-MYLANLABS-2024M1015262

PATIENT
  Age: 65 Year
  Sex: Female

DRUGS (2)
  1. ATORVASTATIN [Suspect]
     Active Substance: ATORVASTATIN
     Indication: Product used for unknown indication
     Dosage: UNK
     Route: 065
  2. INDAPAMIDE\PERINDOPRIL [Suspect]
     Active Substance: INDAPAMIDE\PERINDOPRIL
     Indication: Product used for unknown indication
     Dosage: UNK
     Route: 065

REACTIONS (1)
  - Photosensitivity reaction [Recovering/Resolving]
